FAERS Safety Report 20502853 (Version 1)
Quarter: 2022Q1

REPORT INFORMATION
  Report Type: Spontaneous
  Country: BR (occurrence: BR)
  Receive Date: 20220222
  Receipt Date: 20220222
  Transmission Date: 20220424
  Serious: Yes (Hospitalization)
  Sender: FDA-Public Use
  Company Number: BR-MENARINI-BR-MEN-081438

PATIENT
  Age: 68 Year
  Sex: Female

DRUGS (4)
  1. RANOLAZINE [Suspect]
     Active Substance: RANOLAZINE
     Indication: Infarction
     Dosage: 4 DOSAGE FORM, QD
     Route: 048
     Dates: start: 2019
  2. RANOLAZINE [Suspect]
     Active Substance: RANOLAZINE
     Indication: Product use in unapproved indication
     Dosage: 1 DOSAGE FORM, BID
     Route: 048
     Dates: start: 2019
  3. CARVEDILOL [Concomitant]
     Active Substance: CARVEDILOL
     Indication: Blood pressure management
     Route: 048
     Dates: end: 2019
  4. RAMIPRIL [Concomitant]
     Active Substance: RAMIPRIL
     Indication: Blood pressure management
     Route: 048
     Dates: start: 2021

REACTIONS (5)
  - Uterine polyp [Recovered/Resolved]
  - Surgery [Recovered/Resolved]
  - Pain [Not Recovered/Not Resolved]
  - Product use in unapproved indication [Not Recovered/Not Resolved]
  - Overdose [Recovered/Resolved]

NARRATIVE: CASE EVENT DATE: 20190101
